FAERS Safety Report 13684864 (Version 1)
Quarter: 2017Q2

REPORT INFORMATION
  Report Type: Spontaneous
  Country: CH (occurrence: CH)
  Receive Date: 20170623
  Receipt Date: 20170623
  Transmission Date: 20170830
  Serious: Yes (Hospitalization)
  Sender: FDA-Public Use
  Company Number: CH-TEVA-779637ISR

PATIENT
  Age: 86 Year
  Sex: Female
  Weight: 56.9 kg

DRUGS (7)
  1. SOTALOL MEPHA 80 TABLETTEN [Concomitant]
     Active Substance: SOTALOL HYDROCHLORIDE
     Route: 048
  2. MODURETIC MITE TABLETTEN [Suspect]
     Active Substance: AMILORIDE HYDROCHLORIDE\HYDROCHLOROTHIAZIDE
     Route: 048
     Dates: start: 20170518, end: 20170519
  3. ASPIRIN CARDIO 100 FILMTABLETTEN [Concomitant]
     Active Substance: ASPIRIN
     Route: 048
  4. PANTOZOL [Concomitant]
     Active Substance: PANTOPRAZOLE SODIUM
     Route: 048
  5. CAPTOPRIL-MEPHA 12,5 TABLETTEN [Suspect]
     Active Substance: CAPTOPRIL
     Dosage: 12.5 MILLIGRAM DAILY;
     Route: 048
     Dates: end: 20170521
  6. LEXOTANIL 1,5 TABLETTEN [Concomitant]
     Route: 048
  7. TRIATEC 2,5 MG TABLETTEN [Suspect]
     Active Substance: RAMIPRIL
     Route: 048
     Dates: end: 20170521

REACTIONS (4)
  - Polydipsia [Recovered/Resolved]
  - Atrioventricular block first degree [None]
  - Iatrogenic injury [None]
  - Hyponatraemia [Recovering/Resolving]

NARRATIVE: CASE EVENT DATE: 20170518
